FAERS Safety Report 16326710 (Version 3)
Quarter: 2019Q2

REPORT INFORMATION
  Report Type: Spontaneous
  Country: JP (occurrence: JP)
  Receive Date: 20190517
  Receipt Date: 20190531
  Transmission Date: 20190711
  Serious: Yes (Hospitalization, Other)
  Sender: FDA-Public Use
  Company Number: JP-ASTRAZENECA-2018SF41458

PATIENT
  Age: 73 Year
  Sex: Male
  Weight: 52 kg

DRUGS (7)
  1. IMFINZI [Suspect]
     Active Substance: DURVALUMAB
     Indication: NON-SMALL CELL LUNG CANCER
     Route: 041
     Dates: start: 20190222, end: 20190426
  2. MYSER [Concomitant]
     Dosage: DOSE UNKNOWN
     Route: 062
  3. IMFINZI [Suspect]
     Active Substance: DURVALUMAB
     Indication: NON-SMALL CELL LUNG CANCER
     Route: 041
     Dates: start: 20180921
  4. PREDNISOLONE. [Concomitant]
     Active Substance: PREDNISOLONE
     Dosage: DOSE UNKNOWN
     Route: 065
  5. NEXIUM [Concomitant]
     Active Substance: ESOMEPRAZOLE MAGNESIUM
     Dosage: DOSE UNKNOWN
     Route: 048
  6. REBAMIPIDE [Concomitant]
     Active Substance: REBAMIPIDE
     Dosage: DOSE UNKNOWN
     Route: 065
  7. LOXONIN [Suspect]
     Active Substance: LOXOPROFEN SODIUM
     Dosage: DOSE UNKNOWN
     Route: 048

REACTIONS (5)
  - Acute kidney injury [Recovered/Resolved]
  - Malaise [Recovering/Resolving]
  - Rash [Recovered/Resolved]
  - Hypothyroidism [Recovering/Resolving]
  - Hypotension [Unknown]

NARRATIVE: CASE EVENT DATE: 20180928
